FAERS Safety Report 8506654-2 (Version None)
Quarter: 2012Q3

REPORT INFORMATION
  Report Type: 
  Country: None (occurrence: None)
  Receive Date: 20120703
  Receipt Date: 20120625
  Transmission Date: 20120928
  Serious: No
  Sender: FDA-Public Use
  Company Number: ACO_30551_2012

PATIENT
  Sex: Female

DRUGS (9)
  1. NEXIUM [Concomitant]
  2. AMPYRA [Suspect]
     Indication: PRODUCT USED FOR UNKNOWN INDICATION
     Dosage: 10 MG, QD, ORAL
     Route: 048
  3. ALLEGRA [Concomitant]
  4. POTASSIUM CHLORIDE [Concomitant]
  5. TIZANIDINE HCL [Concomitant]
  6. BACLOFEN [Concomitant]
  7. SOLU-MEDROL [Concomitant]
  8. DOXEPIN HCL [Concomitant]
  9. ALENDRONATE SODIUM [Concomitant]

REACTIONS (4)
  - INAPPROPRIATE SCHEDULE OF DRUG ADMINISTRATION [None]
  - BACK PAIN [None]
  - MALAISE [None]
  - MULTIPLE SCLEROSIS RELAPSE [None]
